FAERS Safety Report 20392514 (Version 1)
Quarter: 2022Q1

REPORT INFORMATION
  Report Type: Spontaneous
  Country: US (occurrence: US)
  Receive Date: 20220128
  Receipt Date: 20220128
  Transmission Date: 20220423
  Serious: Yes (Other)
  Sender: FDA-Public Use
  Company Number: US-GLAXOSMITHKLINE-US2022GSK011544

PATIENT
  Age: 29 Year
  Sex: Female

DRUGS (1)
  1. EPOPROSTENOL SODIUM [Suspect]
     Active Substance: EPOPROSTENOL SODIUM
     Indication: Pulmonary veno-occlusive disease
     Dosage: UNK

REACTIONS (4)
  - Hypoxia [Unknown]
  - Lung opacity [Unknown]
  - Condition aggravated [Unknown]
  - Angiopathy [Unknown]
